FAERS Safety Report 23884205 (Version 1)
Quarter: 2024Q2

REPORT INFORMATION
  Report Type: Spontaneous
  Country: US (occurrence: None)
  Receive Date: 20240521
  Receipt Date: 20240521
  Transmission Date: 20240715
  Serious: Yes (Life-Threatening, Disabling)
  Sender: FDA-Public Use
  Company Number: None

PATIENT
  Age: 32 Year
  Sex: Female
  Weight: 157.5 kg

DRUGS (1)
  1. SEMAGLUTIDE [Suspect]
     Active Substance: SEMAGLUTIDE
     Indication: Obesity
     Dates: start: 20240501, end: 20240518

REACTIONS (6)
  - Product communication issue [None]
  - Victim of abuse [None]
  - Nausea [None]
  - Vomiting [None]
  - Therapy cessation [None]
  - Product advertising issue [None]

NARRATIVE: CASE EVENT DATE: 20240521
